FAERS Safety Report 24541129 (Version 1)
Quarter: 2024Q4

REPORT INFORMATION
  Report Type: Spontaneous
  Country: US (occurrence: US)
  Receive Date: 20241023
  Receipt Date: 20241023
  Transmission Date: 20250115
  Serious: No
  Sender: LEGACY PHARMACEUTICAL PACKAGING
  Company Number: US-LEGACY PHARMA INC.-2024LEG00002

PATIENT
  Sex: Female

DRUGS (1)
  1. ZANAFLEX [Suspect]
     Active Substance: TIZANIDINE HYDROCHLORIDE
     Dosage: UNK
     Dates: start: 202301

REACTIONS (4)
  - Vitreous floaters [Unknown]
  - Nausea [Unknown]
  - Hypokinesia [Unknown]
  - Heart rate increased [Unknown]

NARRATIVE: CASE EVENT DATE: 20230101
